FAERS Safety Report 10100886 (Version 2)
Quarter: 2014Q2

REPORT INFORMATION
  Report Type: Spontaneous
  Country: US (occurrence: US)
  Receive Date: 20140423
  Receipt Date: 20140618
  Transmission Date: 20141212
  Serious: Yes (Hospitalization, Other)
  Sender: FDA-Public Use
  Company Number: US-ELI_LILLY_AND_COMPANY-US201404005472

PATIENT
  Sex: Male

DRUGS (1)
  1. HUMALOG LISPRO [Suspect]
     Indication: TYPE 2 DIABETES MELLITUS
     Dosage: UNK
     Route: 058

REACTIONS (9)
  - Renal impairment [Unknown]
  - Confusional state [Unknown]
  - Angiopathy [Unknown]
  - Vascular dementia [Unknown]
  - Oedema [Unknown]
  - Urinary tract infection [Unknown]
  - Infection [Unknown]
  - Crepitations [Unknown]
  - Weight decreased [Unknown]
